FAERS Safety Report 16667182 (Version 2)
Quarter: 2019Q3

REPORT INFORMATION
  Report Type: Spontaneous
  Country: None (occurrence: DE)
  Receive Date: 20190805
  Receipt Date: 20190830
  Transmission Date: 20191004
  Serious: Yes (Disabling)
  Sender: FDA-Public Use
  Company Number: DE-DRREDDYS-GER/GER/19/0112604

PATIENT
  Age: 49 Year
  Sex: Male
  Weight: 72 kg

DRUGS (2)
  1. CIPROFLOXACIN. [Suspect]
     Active Substance: CIPROFLOXACIN
     Indication: INFECTION
     Dosage: BEI DIVERTIKULITIS IM SIGMA, 3X REZIDIV, JEDES MAL 2-3 WOECHIGE ANTIBIOSE?IN CASE OF DIVERTICULITIS
     Route: 048
     Dates: start: 2009
  2. CIPROFLOXACIN. [Suspect]
     Active Substance: CIPROFLOXACIN
     Indication: DIVERTICULITIS
     Dosage: 500MG IN DEN LETZTEN JAHREN IMMER WIEDER GEGEN INFEKTE VERSCHRIEBEN BEKOMMEN?500MG IN THE LAST YEARS

REACTIONS (11)
  - Pain in extremity [Recovered/Resolved with Sequelae]
  - Chest pain [Recovered/Resolved with Sequelae]
  - Somnolence [Recovered/Resolved with Sequelae]
  - Arthralgia [Recovered/Resolved with Sequelae]
  - Fatigue [Recovered/Resolved with Sequelae]
  - Tendon pain [Recovered/Resolved with Sequelae]
  - Headache [Recovered/Resolved with Sequelae]
  - Pain [Recovered/Resolved with Sequelae]
  - Arthritis [Recovered/Resolved with Sequelae]
  - Impaired work ability [Unknown]
  - Myalgia [Recovered/Resolved with Sequelae]

NARRATIVE: CASE EVENT DATE: 2009
